FAERS Safety Report 16682960 (Version 1)
Quarter: 2019Q3

REPORT INFORMATION
  Report Type: Spontaneous
  Country: US (occurrence: US)
  Receive Date: 20190807
  Receipt Date: 20190807
  Transmission Date: 20191004
  Serious: Yes (Other)
  Sender: FDA-Public Use
  Company Number: None

PATIENT
  Age: 31 Year
  Sex: Female
  Weight: 63.45 kg

DRUGS (1)
  1. BUPRENORPHINE-NALOXONE [Suspect]
     Active Substance: BUPRENORPHINE HYDROCHLORIDE\NALOXONE HYDROCHLORIDE
     Indication: DRUG USE DISORDER
     Route: 048
     Dates: start: 20190625, end: 20190629

REACTIONS (5)
  - Nausea [None]
  - Hyperhidrosis [None]
  - Drug dependence [None]
  - Withdrawal syndrome [None]
  - Vomiting [None]

NARRATIVE: CASE EVENT DATE: 20190625
